FAERS Safety Report 25967183 (Version 3)
Quarter: 2025Q4

REPORT INFORMATION
  Report Type: Spontaneous
  Country: US (occurrence: US)
  Receive Date: 20251028
  Receipt Date: 20251212
  Transmission Date: 20260117
  Serious: No
  Sender: GLAXOSMITHKLINE
  Company Number: US-GSK-US2025134974

PATIENT
  Age: 71 Year
  Sex: Female

DRUGS (2)
  1. INCRUSE ELLIPTA [Suspect]
     Active Substance: UMECLIDINIUM BROMIDE
     Indication: COVID-19 pneumonia
     Dosage: 62.5 MCG,1 PUFF(S), QD
     Dates: end: 20251015
  2. INCRUSE ELLIPTA [Suspect]
     Active Substance: UMECLIDINIUM BROMIDE
     Indication: Dyspnoea

REACTIONS (4)
  - Device use error [Unknown]
  - Off label use [Unknown]
  - Extra dose administered [Unknown]
  - Product complaint [Unknown]

NARRATIVE: CASE EVENT DATE: 20251015
